FAERS Safety Report 9792161 (Version 1)
Quarter: 2014Q1

REPORT INFORMATION
  Report Type: Report from Study
  Country: LB (occurrence: LB)
  Receive Date: 20140102
  Receipt Date: 20140102
  Transmission Date: 20141002
  Serious: Yes (Hospitalization)
  Sender: FDA-Public Use
  Company Number: LB-SA-2014SA000032

PATIENT
  Age: 60 Year
  Sex: Male

DRUGS (7)
  1. LANTUS SOLOSTAR [Suspect]
     Indication: DIABETES MELLITUS
     Dosage: DOSE:50 UNIT(S)
     Route: 058
  2. APIDRA SOLOSTAR [Suspect]
     Indication: DIABETES MELLITUS
     Dosage: DOSE:50 UNIT(S)
     Route: 058
  3. BLOPRESS [Concomitant]
     Route: 048
  4. CONCOR [Concomitant]
     Route: 048
  5. LASIX [Concomitant]
     Route: 048
  6. ASPICOT [Concomitant]
     Route: 048
  7. LIPITOR [Concomitant]
     Route: 048

REACTIONS (1)
  - Cardiac operation [Unknown]
